FAERS Safety Report 8228316-1 (Version None)
Quarter: 2012Q1

REPORT INFORMATION
  Report Type: 
  Country: None (occurrence: None)
  Receive Date: 20120322
  Receipt Date: 20120315
  Transmission Date: 20120608
  Serious: Yes (Other)
  Sender: FDA-Public Use
  Company Number: BR-SANOFI-AVENTIS-2012SA018213

PATIENT
  Age: 56 Year
  Sex: Female
  Weight: 86 kg

DRUGS (7)
  1. ENALAPRIL [Concomitant]
     Indication: BLOOD PRESSURE
     Route: 048
  2. BUPROPION HCL [Concomitant]
     Indication: DEPRESSION
     Route: 048
     Dates: start: 20090101
  3. SIMVASTATIN [Concomitant]
     Route: 048
  4. LANTUS [Suspect]
     Indication: TYPE 1 DIABETES MELLITUS
     Dosage: DOSE: 48 - 50 IU DAILY
     Route: 058
     Dates: start: 20090101
  5. RISPERIDONE [Concomitant]
     Indication: DEPRESSION
     Route: 048
     Dates: start: 20090101
  6. SOLOSTAR [Suspect]
     Indication: DEVICE THERAPY
     Dates: start: 20090101
  7. BUPROPION HCL [Concomitant]
     Indication: DEPRESSION
     Route: 048
     Dates: start: 20100101

REACTIONS (7)
  - CARPAL TUNNEL SYNDROME [None]
  - OEDEMA PERIPHERAL [None]
  - HYPERGLYCAEMIA [None]
  - FIBROMYALGIA [None]
  - FATIGUE [None]
  - TENDON RUPTURE [None]
  - PAIN [None]
